FAERS Safety Report 9122392 (Version 1)
Quarter: 2013Q1

REPORT INFORMATION
  Report Type: Spontaneous
  Country: US (occurrence: None)
  Receive Date: 20130130
  Receipt Date: 20130130
  Transmission Date: 20140127
  Serious: Yes (Death)
  Sender: FDA-Public Use
  Company Number: B0858897A

PATIENT
  Age: 45 Year
  Sex: Male

DRUGS (4)
  1. DIAZEPAM (FORMULATION UNKNOWN) (GENERIC) (DIAZEPAM) [Suspect]
     Route: 048
  2. ETHANOL (FORMULATION UNKNOWN) (ALCOHOL) [Suspect]
     Route: 048
  3. PAROXETINE HYDROCHLORIDE (FORMULATION UNKNOWN) (GENERIC) (PAROXETINE HYDROCHLORIDE) [Suspect]
     Route: 048
  4. ALPRAZOLAM (FORMULATION UNKNOWN) (ALPRAZOLAM) [Suspect]
     Route: 048

REACTIONS (1)
  - Drug abuse [None]
